FAERS Safety Report 8009078-X (Version None)
Quarter: 2011Q4

REPORT INFORMATION
  Report Type: 
  Country: None (occurrence: None)
  Receive Date: 20111227
  Receipt Date: 20111220
  Transmission Date: 20120403
  Serious: No
  Sender: FDA-Public Use
  Company Number: US-PFIZER INC-2011309997

PATIENT
  Sex: Female
  Weight: 56.689 kg

DRUGS (3)
  1. NORVASC [Concomitant]
     Indication: HYPERTENSION
     Dosage: DAILY
  2. LATANOPROST [Suspect]
     Indication: GLAUCOMA
     Dosage: ONE DROP IN EACH EYE DAILY
     Dates: start: 20110101, end: 20110101
  3. TOPROL-XL [Concomitant]
     Indication: HYPERTENSION
     Dosage: 25 MG, DAILY

REACTIONS (1)
  - EYELID IRRITATION [None]
